FAERS Safety Report 18103814 (Version 1)
Quarter: 2020Q3

REPORT INFORMATION
  Report Type: Spontaneous
  Country: US (occurrence: US)
  Receive Date: 20200801
  Receipt Date: 20200801
  Transmission Date: 20201103
  Serious: No
  Sender: FDA-Public Use
  Company Number: None

PATIENT
  Age: 41 Year
  Sex: Male

DRUGS (1)
  1. EPCLUSA [Suspect]
     Active Substance: SOFOSBUVIR\VELPATASVIR
     Dosage: OTHER DOSE:400?100MG;?
     Route: 048

REACTIONS (4)
  - Dehydration [None]
  - Nausea [None]
  - Extra dose administered [None]
  - Fatigue [None]

NARRATIVE: CASE EVENT DATE: 20200801
